FAERS Safety Report 26130699 (Version 1)
Quarter: 2025Q4

REPORT INFORMATION
  Report Type: Spontaneous
  Country: AU (occurrence: AU)
  Receive Date: 20251208
  Receipt Date: 20251208
  Transmission Date: 20260118
  Serious: Yes (Other)
  Sender: BIOVITRUM
  Company Number: AU-BIOVITRUM-2025-AU-016882

PATIENT
  Age: 75 Year
  Sex: Male

DRUGS (1)
  1. ANAKINRA [Suspect]
     Active Substance: ANAKINRA
     Indication: Product used for unknown indication

REACTIONS (8)
  - Septic shock [Unknown]
  - Candida infection [Unknown]
  - Drug ineffective [Unknown]
  - Liver abscess [Unknown]
  - Multiple organ dysfunction syndrome [Unknown]
  - Renal failure [Unknown]
  - Splenic abscess [Unknown]
  - Systemic candida [Unknown]
